FAERS Safety Report 10217223 (Version 2)
Quarter: 2014Q2

REPORT INFORMATION
  Report Type: Report from Study
  Country: US (occurrence: US)
  Receive Date: 20140604
  Receipt Date: 20140610
  Transmission Date: 20141212
  Serious: Yes (Hospitalization, Other)
  Sender: FDA-Public Use
  Company Number: GXBR2014US001370

PATIENT
  Age: 62 Year
  Sex: Female
  Weight: 69.84 kg

DRUGS (14)
  1. ENOXAPARIN SODIUM [Suspect]
     Indication: THROMBOSIS
     Dosage: 100 MG, QD
     Route: 058
     Dates: end: 20140523
  2. ENOXAPARIN SODIUM [Suspect]
     Dosage: 120 MG, QD
     Route: 058
     Dates: start: 20140524
  3. PREDNISONE TABLETS USP [Suspect]
     Indication: VASCULITIS
     Dosage: 10 MG, QD
  4. PREDNISONE TABLETS USP [Suspect]
     Dosage: 80 MG, QD
  5. LEVOTHYROXINE [Concomitant]
     Indication: THYROID CANCER
     Dosage: 300 UG, QD
     Route: 048
  6. LASIX [Concomitant]
     Indication: OEDEMA
     Dosage: 40 MG, QD
     Route: 048
  7. POTASSIUM [Concomitant]
     Dosage: 10 MEQ, TID
     Route: 048
  8. XANAX [Concomitant]
     Indication: ANXIETY
     Dosage: 1 MG, QD
     Route: 048
  9. ATARAX//HYDROXYZINE [Concomitant]
     Indication: PRURITUS
     Dosage: 25 MG, TID
     Route: 048
  10. DILAUDID [Concomitant]
     Indication: PAIN
     Dosage: 8 MG, QID
     Route: 048
  11. ZOFRAN [Concomitant]
     Indication: NAUSEA
     Dosage: 4 MG, UNK, PRN
     Route: 048
  12. METHOTREXATE [Concomitant]
     Indication: LYMPHOMA
     Dosage: 5 MG, QW
     Route: 048
     Dates: start: 20140526
  13. FLEXERIL [Concomitant]
     Dosage: 10 MG, TID
     Route: 048
  14. FOLIC ACID [Concomitant]
     Indication: SUPPLEMENTATION THERAPY
     Dosage: 1 MG, QD
     Route: 048

REACTIONS (10)
  - Cellulitis [Recovering/Resolving]
  - Vasculitis [Unknown]
  - Disease progression [Unknown]
  - Oedema peripheral [Not Recovered/Not Resolved]
  - Pyrexia [Not Recovered/Not Resolved]
  - Pain [Not Recovered/Not Resolved]
  - Chills [Not Recovered/Not Resolved]
  - Joint dislocation [Unknown]
  - Diabetes mellitus [Unknown]
  - Weight increased [Not Recovered/Not Resolved]
